FAERS Safety Report 25494555 (Version 1)
Quarter: 2025Q2

REPORT INFORMATION
  Report Type: Report from Study
  Country: ZA (occurrence: ZA)
  Receive Date: 20250630
  Receipt Date: 20250630
  Transmission Date: 20250717
  Serious: Yes (Congenital Anomaly, Other)
  Sender: MYLAN
  Company Number: ZA-MYLANLABS-2025M1053842

PATIENT
  Sex: Male
  Weight: 3.115 kg

DRUGS (2)
  1. DOLUTEGRAVIR\LAMIVUDINE\TENOFOVIR DISOPROXIL FUMARATE [Suspect]
     Active Substance: DOLUTEGRAVIR\LAMIVUDINE\TENOFOVIR DISOPROXIL FUMARATE
     Indication: HIV infection
     Dosage: UNK UNK, QD (650)
  2. DOLUTEGRAVIR [Suspect]
     Active Substance: DOLUTEGRAVIR
     Indication: HIV infection
     Dosage: UNK UNK, QD (50)

REACTIONS (2)
  - Congenital umbilical hernia [Unknown]
  - Foetal exposure during pregnancy [Recovered/Resolved]
